FAERS Safety Report 23622213 (Version 1)
Quarter: 2024Q1

REPORT INFORMATION
  Report Type: Spontaneous
  Country: US (occurrence: US)
  Receive Date: 20240312
  Receipt Date: 20240312
  Transmission Date: 20240409
  Serious: No
  Sender: FDA-Public Use
  Company Number: US-KARYOPHARM-2023KPT002222

PATIENT

DRUGS (2)
  1. XPOVIO [Suspect]
     Active Substance: SELINEXOR
     Indication: Plasma cell myeloma
  2. THALIDOMIDE [Concomitant]
     Active Substance: THALIDOMIDE

REACTIONS (2)
  - Laboratory test abnormal [Unknown]
  - Diarrhoea [Unknown]
